FAERS Safety Report 13872567 (Version 1)
Quarter: 2017Q3

REPORT INFORMATION
  Report Type: Spontaneous
  Country: US (occurrence: US)
  Receive Date: 20170816
  Receipt Date: 20170816
  Transmission Date: 20171127
  Serious: No
  Sender: FDA-Public Use
  Company Number: US-PFIZER INC-2017353084

PATIENT
  Age: 65 Year

DRUGS (4)
  1. NEURONTIN [Suspect]
     Active Substance: GABAPENTIN
  2. FENTANYL CITRATE. [Suspect]
     Active Substance: FENTANYL CITRATE
  3. FLEXERIL [Suspect]
     Active Substance: CYCLOBENZAPRINE HYDROCHLORIDE
  4. LITHIUM. [Suspect]
     Active Substance: LITHIUM

REACTIONS (1)
  - Drug hypersensitivity [Unknown]
